FAERS Safety Report 7732339-6 (Version None)
Quarter: 2011Q3

REPORT INFORMATION
  Report Type: 
  Country: None (occurrence: None)
  Receive Date: 20110906
  Receipt Date: 20110830
  Transmission Date: 20111222
  Serious: Yes (Hospitalization)
  Sender: FDA-Public Use
  Company Number: US-GILEAD-2011-0042944

PATIENT
  Sex: Male

DRUGS (17)
  1. BYSTOLIC [Concomitant]
  2. REQUIP [Concomitant]
  3. COUMADIN [Concomitant]
  4. FOLIC ACID [Concomitant]
  5. WELCHOL [Concomitant]
  6. ULTRAM [Concomitant]
  7. FOSAMAX [Concomitant]
  8. PREDNISONE [Concomitant]
  9. VITAMIN D [Concomitant]
  10. REVATIO [Concomitant]
  11. ARIXTRA [Concomitant]
  12. HYDROXYCHLOROQUINE [Concomitant]
  13. SYNTHROID [Concomitant]
  14. RESTORIL [Concomitant]
  15. LETAIRIS [Suspect]
     Indication: PULMONARY HYPERTENSION
     Route: 048
     Dates: start: 20110309
  16. LASIX [Concomitant]
  17. PRILOSEC [Concomitant]

REACTIONS (2)
  - RESPIRATORY FAILURE [None]
  - NEUROPATHY PERIPHERAL [None]
